FAERS Safety Report 12314713 (Version 1)
Quarter: 2016Q2

REPORT INFORMATION
  Report Type: Spontaneous
  Country: JP (occurrence: JP)
  Receive Date: 20160428
  Receipt Date: 20160428
  Transmission Date: 20160815
  Serious: Yes (Other)
  Sender: FDA-Public Use
  Company Number: JP-WATSON-2016-08621

PATIENT
  Age: 69 Year
  Sex: Female

DRUGS (3)
  1. CLARITHROMYCIN (UNKNOWN) [Suspect]
     Active Substance: CLARITHROMYCIN
     Indication: HELICOBACTER INFECTION
     Dosage: 400 MG, DAILY
     Route: 065
  2. AMOXICILLIN. [Suspect]
     Active Substance: AMOXICILLIN
     Indication: HELICOBACTER INFECTION
     Dosage: 1500 MG, DAILY
     Route: 065
  3. VONOPRAZAN [Suspect]
     Active Substance: VONOPRAZAN
     Indication: HELICOBACTER INFECTION
     Dosage: 40 MG, DAILY
     Route: 065

REACTIONS (1)
  - Erythema multiforme [Recovering/Resolving]
